FAERS Safety Report 7358904-6 (Version None)
Quarter: 2011Q1

REPORT INFORMATION
  Report Type: 
  Country: None (occurrence: None)
  Receive Date: 20110317
  Receipt Date: 20110307
  Transmission Date: 20110831
  Serious: Yes (Other)
  Sender: FDA-Public Use
  Company Number: US-WATSON-2011-03094

PATIENT
  Sex: Female
  Weight: 48.526 kg

DRUGS (2)
  1. INFED [Suspect]
     Indication: IRON DEFICIENCY
     Dosage: UNKNOWN, SINCE DURING IV INFUSION HAD REACTION (1ST TIME)
     Route: 042
     Dates: start: 20101118, end: 20101118
  2. CIMZIA [Suspect]
     Indication: CROHN'S DISEASE
     Dosage: 200 MG PER INJECTION
     Route: 058
     Dates: start: 20101108, end: 20101201

REACTIONS (12)
  - ANAPHYLACTIC REACTION [None]
  - HEAD DISCOMFORT [None]
  - VOMITING [None]
  - ARTHRALGIA [None]
  - DIZZINESS [None]
  - DYSPNOEA [None]
  - CHEST DISCOMFORT [None]
  - DIARRHOEA [None]
  - CHEST PAIN [None]
  - CROHN'S DISEASE [None]
  - PSORIATIC ARTHROPATHY [None]
  - RESPIRATORY ARREST [None]
